FAERS Safety Report 23710083 (Version 2)
Quarter: 2024Q2

REPORT INFORMATION
  Report Type: Spontaneous
  Country: US (occurrence: None)
  Receive Date: 20240405
  Receipt Date: 20240503
  Transmission Date: 20240716
  Serious: No
  Sender: FDA-Public Use
  Company Number: 2024A067017

PATIENT
  Age: 24142 Day
  Sex: Female

DRUGS (1)
  1. BYDUREON BCISE [Suspect]
     Active Substance: EXENATIDE

REACTIONS (5)
  - Ultrasound breast abnormal [Unknown]
  - Cerebral disorder [Unknown]
  - Scar [Unknown]
  - Wrong technique in device usage process [Unknown]
  - Device defective [Unknown]

NARRATIVE: CASE EVENT DATE: 20240315
